FAERS Safety Report 5613433-2 (Version None)
Quarter: 2008Q1

REPORT INFORMATION
  Report Type: 
  Country: None (occurrence: None)
  Receive Date: 20080205
  Receipt Date: 20080129
  Transmission Date: 20080703
  Serious: Yes (Hospitalization, Other)
  Sender: FDA-Public Use
  Company Number: US-BAYER-200812525NA

PATIENT
  Age: 29 Year
  Sex: Female
  Weight: 106 kg

DRUGS (1)
  1. YAZ [Suspect]
     Indication: METRORRHAGIA
     Route: 048
     Dates: start: 20070608, end: 20080127

REACTIONS (2)
  - PAIN IN EXTREMITY [None]
  - PULMONARY EMBOLISM [None]
